FAERS Safety Report 6235389-4 (Version None)
Quarter: 2009Q2

REPORT INFORMATION
  Report Type: 
  Country: None (occurrence: None)
  Receive Date: 20090618
  Receipt Date: 20081020
  Transmission Date: 20091009
  Serious: Yes (Hospitalization)
  Sender: FDA-Public Use
  Company Number: US-ASTRAZENECA-2008UW23410

PATIENT
  Age: 67 Year
  Sex: Female
  Weight: 45.8 kg

DRUGS (3)
  1. ENTOCORT EC [Suspect]
     Indication: CROHN'S DISEASE
     Route: 048
     Dates: start: 20060101
  2. CODEINE [Concomitant]
  3. LOMOTIL [Concomitant]

REACTIONS (3)
  - DIZZINESS [None]
  - INTESTINAL OBSTRUCTION [None]
  - OCCULT BLOOD POSITIVE [None]
